FAERS Safety Report 23335072 (Version 1)
Quarter: 2023Q4

REPORT INFORMATION
  Report Type: Spontaneous
  Country: GB (occurrence: None)
  Receive Date: 20231225
  Receipt Date: 20231225
  Transmission Date: 20240109
  Serious: Yes (Other)
  Sender: FDA-Public Use
  Company Number: 2023A288614

PATIENT
  Sex: Female

DRUGS (1)
  1. TEZEPELUMAB [Suspect]
     Active Substance: TEZEPELUMAB
     Dosage: DRUG HELD, FOR REVIEW IN SEVERE ASTHMA MDT

REACTIONS (7)
  - Throat tightness [Unknown]
  - Vomiting [Unknown]
  - Rash [Unknown]
  - Chest pain [Unknown]
  - Abdominal pain [Unknown]
  - Burning sensation [Unknown]
  - Joint instability [Unknown]
